FAERS Safety Report 6656601-3 (Version None)
Quarter: 2010Q1

REPORT INFORMATION
  Report Type: 
  Country: None (occurrence: None)
  Receive Date: 20100329
  Receipt Date: 20091029
  Transmission Date: 20100710
  Serious: No
  Sender: FDA-Public Use
  Company Number: US-BAUSCH-2009BL005468

PATIENT
  Age: 68 Year
  Sex: Female

DRUGS (6)
  1. FLUNISOLIDE [Suspect]
     Indication: SEASONAL ALLERGY
     Route: 045
     Dates: start: 20090226, end: 20091021
  2. CENTRUM SILVER [Concomitant]
  3. VITAMIN D [Concomitant]
  4. VITAMIN K TAB [Concomitant]
  5. ZINC [Concomitant]
  6. POTASSIUM [Concomitant]

REACTIONS (2)
  - EPISTAXIS [None]
  - FACE INJURY [None]
